FAERS Safety Report 19993919 (Version 1)
Quarter: 2021Q4

REPORT INFORMATION
  Report Type: Spontaneous
  Country: US (occurrence: US)
  Receive Date: 20211026
  Receipt Date: 20211026
  Transmission Date: 20220303
  Serious: No
  Sender: FDA-Public Use
  Company Number: US-SA-SAC20211019000711

PATIENT
  Sex: Male

DRUGS (5)
  1. DUPIXENT [Suspect]
     Active Substance: DUPILUMAB
     Indication: Prurigo
     Dosage: 300 MG, QOW
     Route: 058
  2. IVERMECTIN [Concomitant]
     Active Substance: IVERMECTIN
     Dosage: UNK
     Route: 065
  3. KETOCONAZOLE [Concomitant]
     Active Substance: KETOCONAZOLE
     Dosage: UNK
     Route: 065
  4. LISINOPRIL [Concomitant]
     Active Substance: LISINOPRIL
     Dosage: 40 MG
  5. SYNTHROID [Concomitant]
     Active Substance: LEVOTHYROXINE SODIUM
     Dosage: UNK

REACTIONS (3)
  - Skin exfoliation [Unknown]
  - Rash [Unknown]
  - Inappropriate schedule of product administration [Unknown]
